FAERS Safety Report 9006762 (Version 1)
Quarter: 2013Q1

REPORT INFORMATION
  Report Type: Report from Study
  Country: US (occurrence: US)
  Receive Date: 20130110
  Receipt Date: 20130110
  Transmission Date: 20140127
  Serious: Yes (Hospitalization, Other)
  Sender: FDA-Public Use
  Company Number: US-JNJFOC-20130103790

PATIENT
  Sex: 0

DRUGS (10)
  1. REMICADE [Suspect]
     Indication: COLITIS ULCERATIVE
     Route: 042
  2. REMICADE [Suspect]
     Indication: COLITIS
     Route: 042
  3. IMURAN [Concomitant]
  4. PREDNISONE [Concomitant]
  5. ASACOL [Concomitant]
     Dosage: X 12
  6. AMBIEN [Concomitant]
     Indication: INSOMNIA
  7. PROBIOTICS [Concomitant]
     Dosage: FLORASTOR PROBIOTICS
  8. IRON [Concomitant]
  9. MULTIVITAMINS [Concomitant]
  10. CALCIUM [Concomitant]

REACTIONS (6)
  - Anaphylactic shock [Unknown]
  - Hypersensitivity [Unknown]
  - Colitis [Unknown]
  - Anaemia [Unknown]
  - Pain [Unknown]
  - Diarrhoea haemorrhagic [Recovered/Resolved]
